FAERS Safety Report 15608422 (Version 1)
Quarter: 2018Q4

REPORT INFORMATION
  Report Type: Spontaneous
  Country: US (occurrence: US)
  Receive Date: 20181107
  Receipt Date: 20181107
  Transmission Date: 20190205
  Serious: No
  Sender: FDA-Public Use
  Company Number: None

PATIENT
  Age: 68 Year
  Sex: Male
  Weight: 80 kg

DRUGS (1)
  1. CELECOXIB. [Suspect]
     Active Substance: CELECOXIB
     Indication: PAIN
     Dosage: ?          OTHER DOSE:1 TAB;?
     Route: 048
     Dates: start: 20180702, end: 20180718

REACTIONS (6)
  - Urticaria [None]
  - Somnolence [None]
  - Therapy cessation [None]
  - Fatigue [None]
  - Rash [None]
  - Therapeutic response increased [None]

NARRATIVE: CASE EVENT DATE: 20180718
